FAERS Safety Report 6237100-X (Version None)
Quarter: 2009Q2

REPORT INFORMATION
  Report Type: 
  Country: None (occurrence: None)
  Receive Date: 20090619
  Receipt Date: 20090408
  Transmission Date: 20091009
  Serious: No
  Sender: FDA-Public Use
  Company Number: US-ASTRAZENECA-2009UW08834

PATIENT
  Age: 83 Year
  Sex: Female

DRUGS (2)
  1. SYMBICORT [Suspect]
     Dosage: 160/4.5 UG 2 PUFFS
     Route: 055
     Dates: start: 20090308, end: 20090324
  2. SYMBICORT [Suspect]
     Dosage: 80/4.5 UG  2  PUFFS
     Route: 055
     Dates: start: 20090324

REACTIONS (2)
  - DYSPHONIA [None]
  - INSOMNIA [None]
